FAERS Safety Report 5799878-9 (Version None)
Quarter: 2008Q2

REPORT INFORMATION
  Report Type: 
  Country: None (occurrence: None)
  Receive Date: 20080623
  Receipt Date: 20080523
  Transmission Date: 20081010
  Serious: Yes (Other)
  Sender: FDA-Public Use
  Company Number: US-WYE-H04272908

PATIENT
  Age: 44 Year
  Sex: Female
  Weight: 56.75 kg

DRUGS (5)
  1. PRISTIQ [Suspect]
     Indication: DEPRESSION
     Dosage: 50 MG 1X PER 1 DAY, ORAL
     Route: 048
     Dates: start: 20080522, end: 20080522
  2. ORTHO TRI-CYCLEN LO [Concomitant]
  3. MULTIVITANS (ASCORBIC ACID/ERGOCALCIFEROL/FOLIC ACID/NICOTINAMIDE/PANT [Concomitant]
  4. PAMELOR [Concomitant]
  5. XANAX [Concomitant]

REACTIONS (8)
  - BALANCE DISORDER [None]
  - COORDINATION ABNORMAL [None]
  - DIZZINESS [None]
  - EARLY MORNING AWAKENING [None]
  - EYE DISORDER [None]
  - FEELING ABNORMAL [None]
  - INSOMNIA [None]
  - VISION BLURRED [None]
